FAERS Safety Report 9276085 (Version 1)
Quarter: 2013Q2

REPORT INFORMATION
  Report Type: Spontaneous
  Country: US (occurrence: US)
  Receive Date: 20130507
  Receipt Date: 20130507
  Transmission Date: 20140414
  Serious: No
  Sender: FDA-Public Use
  Company Number: US-PFIZER INC-2013138471

PATIENT
  Age: 51 Year
  Sex: Female
  Weight: 77.1 kg

DRUGS (4)
  1. PREMARIN [Suspect]
     Indication: VULVOVAGINAL DRYNESS
     Dosage: UNK, AS NEEDED
     Route: 067
     Dates: start: 2012
  2. OMEPRAZOLE [Concomitant]
     Dosage: 8 MG, 1X/DAY
  3. PROMETRIUM [Concomitant]
     Dosage: 100 MG, UNK
     Route: 048
  4. NORTRIPTYLINE [Concomitant]
     Dosage: UNK

REACTIONS (1)
  - Food intolerance [Unknown]
